FAERS Safety Report 8240103-7 (Version None)
Quarter: 2012Q1

REPORT INFORMATION
  Report Type: 
  Country: None (occurrence: None)
  Receive Date: 20120328
  Receipt Date: 20120322
  Transmission Date: 20120608
  Serious: No
  Sender: FDA-Public Use
  Company Number: US-BAYER-2012-029502

PATIENT
  Sex: Female

DRUGS (4)
  1. IBUPROFEN [Concomitant]
  2. PAMPRIN TAB [Concomitant]
  3. ALEVE (CAPLET) [Suspect]
     Indication: DYSMENORRHOEA
     Route: 048
  4. IBUPROFEN (ADVIL) [Concomitant]

REACTIONS (1)
  - NO ADVERSE EVENT [None]
